FAERS Safety Report 8472939 (Version 7)
Quarter: 2013Q1

REPORT INFORMATION
  Report Type: Spontaneous
  Country: US (occurrence: US)
  Receive Date: 20120322
  Receipt Date: 20130313
  Transmission Date: 20140127
  Serious: Yes (Life-Threatening, Congenital Anomaly, Other)
  Sender: FDA-Public Use
  Company Number: US-PFIZER INC-2011275920

PATIENT
  Sex: Male
  Weight: 4 kg

DRUGS (8)
  1. ZOLOFT [Suspect]
     Indication: DEPRESSION
     Dosage: UNK
     Route: 064
     Dates: start: 2003
  2. ZOLOFT [Suspect]
     Dosage: 50 MG, 1X/DAY
     Route: 064
     Dates: start: 20031106, end: 200506
  3. ZOLOFT [Suspect]
     Dosage: 100 MG, 1X/DAY
     Route: 064
     Dates: start: 20040125
  4. PRENATAL VITAMINS [Concomitant]
     Dosage: UNK
     Route: 064
  5. URISED [Concomitant]
     Dosage: UNK
     Route: 064
  6. DARVOCET-N [Concomitant]
     Dosage: UNK
     Route: 064
  7. LEVAQUIN [Concomitant]
     Dosage: UNK
     Route: 064
  8. HYDROCODONE [Concomitant]
     Dosage: UNK
     Route: 064

REACTIONS (6)
  - Maternal exposure timing unspecified [Unknown]
  - Heart disease congenital [Unknown]
  - Ankyloglossia congenital [Unknown]
  - Bicuspid aortic valve [Unknown]
  - Aortic valve incompetence [Unknown]
  - Pertussis [Unknown]
